FAERS Safety Report 25286404 (Version 1)
Quarter: 2025Q2

REPORT INFORMATION
  Report Type: Spontaneous
  Country: IT (occurrence: IT)
  Receive Date: 20250509
  Receipt Date: 20250509
  Transmission Date: 20250716
  Serious: Yes (Hospitalization)
  Sender: TEVA
  Company Number: None

PATIENT
  Age: 73 Year
  Sex: Female

DRUGS (5)
  1. ALLOPURINOL [Suspect]
     Active Substance: ALLOPURINOL
     Indication: Hypercalcaemia of malignancy
     Dosage: 300 MG. ONE TABLET DAILY. CPR. EXPIRATION DATE: 10.2027; ALLOPURINOL TEVA ITALY
     Route: 048
     Dates: start: 20250326, end: 20250330
  2. MICARDIS [Concomitant]
     Active Substance: TELMISARTAN
     Indication: Hypertension
     Dosage: CPR 80 MG
     Route: 048
  3. HYDROCHLOROTHIAZIDE\TELMISARTAN [Concomitant]
     Active Substance: HYDROCHLOROTHIAZIDE\TELMISARTAN
     Indication: Hypertension
     Dosage: CPR 80 + 25 MG. ONE IN THE MORNING
     Route: 048
  4. BISOPROLOL [Concomitant]
     Active Substance: BISOPROLOL
     Indication: Hypertension
     Dosage: CPR RIV DIV. 1.25 MG. ONE IN THE MORNING
     Route: 048
  5. CLARITHROMYCIN [Concomitant]
     Active Substance: CLARITHROMYCIN
     Indication: Product used for unknown indication
     Route: 048

REACTIONS (7)
  - Abdominal lymphadenopathy [Unknown]
  - Pyrexia [Recovered/Resolved]
  - Pruritus [Recovering/Resolving]
  - Ageusia [Recovered/Resolved]
  - Decreased appetite [Recovered/Resolved]
  - Dry mouth [Recovered/Resolved]
  - Rash [Recovering/Resolving]

NARRATIVE: CASE EVENT DATE: 20250326
